FAERS Safety Report 11596579 (Version 1)
Quarter: 2015Q4

REPORT INFORMATION
  Report Type: Report from Study
  Country: NL (occurrence: NL)
  Receive Date: 20151006
  Receipt Date: 20151006
  Transmission Date: 20160304
  Serious: Yes (Other)
  Sender: FDA-Public Use
  Company Number: NL-AMGEN-NLDSL2015103317

PATIENT
  Age: 52 Year
  Sex: Female

DRUGS (3)
  1. CALCI CHEW D3 [Concomitant]
     Active Substance: CALCIUM CARBONATE\CHOLECALCIFEROL
     Dosage: 500MG/400 IE UNK, QD
  2. XGEVA [Suspect]
     Active Substance: DENOSUMAB
     Dosage: UNK
     Route: 058
  3. XGEVA [Suspect]
     Active Substance: DENOSUMAB
     Indication: METASTASIS
     Dosage: 120 MG (1.70 ML), Q4WK
     Route: 058

REACTIONS (1)
  - Metastases to liver [Recovering/Resolving]

NARRATIVE: CASE EVENT DATE: 20150903
